FAERS Safety Report 25973271 (Version 2)
Quarter: 2025Q4

REPORT INFORMATION
  Report Type: Spontaneous
  Country: EU (occurrence: EU)
  Receive Date: 20251029
  Receipt Date: 20251128
  Transmission Date: 20260118
  Serious: Yes (Hospitalization)
  Sender: SANDOZ
  Company Number: None

PATIENT
  Age: 67 Year
  Sex: Male
  Weight: 162 kg

DRUGS (14)
  1. FLUOROURACIL [Suspect]
     Active Substance: FLUOROURACIL
     Indication: Colorectal cancer metastatic
     Dosage: 6400 MG
     Route: 042
     Dates: start: 20250806
  2. FLUOROURACIL [Suspect]
     Active Substance: FLUOROURACIL
     Dosage: 6400 MG,ON 17-SEP-2025, HE HAD MOST RECENT  DOSE (6400 MG)
     Route: 042
     Dates: start: 20250917
  3. BEVACIZUMAB [Suspect]
     Active Substance: BEVACIZUMAB
     Dosage: 440 MG
     Route: 042
     Dates: start: 20250917
  4. BEVACIZUMAB [Suspect]
     Active Substance: BEVACIZUMAB
     Indication: Colorectal cancer metastatic
     Dosage: 490 MG
     Route: 042
     Dates: start: 20250806
  5. LEVOLEUCOVORIN CALCIUM [Suspect]
     Active Substance: LEVOLEUCOVORIN CALCIUM
     Indication: Colorectal cancer metastatic
     Dosage: 400 MG, ON 17-SEP-2025, HE HAD MOST RECENT  DOSE (400 MG)
     Route: 042
     Dates: start: 20250806
  6. IRINOTECAN [Suspect]
     Active Substance: IRINOTECAN
     Indication: Colorectal cancer metastatic
     Dosage: 330 MG, ON 17-SEP-2025, HE HAD MOST RECENT  DOSE (330 MG)
     Route: 042
     Dates: start: 20250806
  7. OXALIPLATIN [Suspect]
     Active Substance: OXALIPLATIN
     Indication: Colorectal cancer metastatic
     Dosage: 170 MG,ON 17-SEP-2025, HE HAD MOST RECENT  DOSE (170 MG)
     Route: 042
     Dates: start: 20250806
  8. CANDESARTAN [Concomitant]
     Active Substance: CANDESARTAN
     Indication: Hypertension
     Dosage: 32 MG, QD
     Route: 048
     Dates: start: 202506
  9. ENOXAPARIN SODIUM [Concomitant]
     Active Substance: ENOXAPARIN SODIUM
     Indication: Atrial fibrillation
     Dosage: 0.8MG
     Route: 048
  10. METFORMIN [Concomitant]
     Active Substance: METFORMIN HYDROCHLORIDE
     Indication: Diabetes mellitus
     Dosage: 500 MG, QD
     Route: 048
     Dates: start: 2019
  11. NORVASC [Concomitant]
     Active Substance: AMLODIPINE BESYLATE
     Indication: Hypertension
     Dosage: 5 MG (INTERVAL: 0.5 DAYS)
     Route: 048
     Dates: start: 2024
  12. PANTOPRAZOLE SODIUM [Concomitant]
     Active Substance: PANTOPRAZOLE SODIUM
     Indication: Gastrointestinal disorder prophylaxis
     Dosage: 20 MG, QD
     Route: 048
     Dates: start: 202506
  13. PRAVASTATIN [Concomitant]
     Active Substance: PRAVASTATIN
     Indication: Hypercholesterolaemia
     Dosage: 40 MG, QD
     Route: 048
     Dates: start: 2005
  14. ALLOPURINOL [Concomitant]
     Active Substance: ALLOPURINOL
     Indication: Hypercalcaemia
     Dosage: 150 MG, QD
     Route: 048

REACTIONS (1)
  - Gallbladder rupture [Recovered/Resolved]

NARRATIVE: CASE EVENT DATE: 20251006
